FAERS Safety Report 12577892 (Version 1)
Quarter: 2016Q3

REPORT INFORMATION
  Report Type: Spontaneous
  Country: US (occurrence: None)
  Receive Date: 20160720
  Receipt Date: 20160720
  Transmission Date: 20161109
  Serious: Yes (Other)
  Sender: FDA-Public Use
  Company Number: None

PATIENT
  Age: 45 Year
  Sex: Female
  Weight: 55.79 kg

DRUGS (1)
  1. GABAPENTIN 600 MG CAMBER PHA [Suspect]
     Active Substance: GABAPENTIN
     Indication: ANXIETY DISORDER
     Route: 048

REACTIONS (7)
  - Anxiety [None]
  - Insomnia [None]
  - Crying [None]
  - Drug dose titration not performed [None]
  - Vomiting [None]
  - Withdrawal syndrome [None]
  - Diarrhoea [None]

NARRATIVE: CASE EVENT DATE: 20160716
